FAERS Safety Report 18795228 (Version 1)
Quarter: 2021Q1

REPORT INFORMATION
  Report Type: Spontaneous
  Country: US (occurrence: US)
  Receive Date: 20210127
  Receipt Date: 20210127
  Transmission Date: 20210419
  Serious: No
  Sender: FDA-Public Use
  Company Number: US-ASTRAZENECA-2021A003325

PATIENT
  Age: 25102 Day
  Sex: Male
  Weight: 77.1 kg

DRUGS (5)
  1. BYDUREON BCISE [Suspect]
     Active Substance: EXENATIDE
     Indication: TYPE 2 DIABETES MELLITUS
     Route: 058
     Dates: start: 2018
  2. BYETTA [Concomitant]
     Active Substance: EXENATIDE
  3. METFORMIN [Concomitant]
     Active Substance: METFORMIN HYDROCHLORIDE
     Indication: TYPE 2 DIABETES MELLITUS
     Route: 065
     Dates: start: 1995
  4. BYDUREON [Suspect]
     Active Substance: EXENATIDE
     Indication: TYPE 2 DIABETES MELLITUS
     Route: 058
     Dates: end: 2018
  5. BYDUREON [Concomitant]
     Active Substance: EXENATIDE

REACTIONS (5)
  - Device leakage [Unknown]
  - Injection site mass [Recovered/Resolved]
  - Injection site haemorrhage [Unknown]
  - Intentional device misuse [Unknown]
  - Incorrect dose administered [Unknown]

NARRATIVE: CASE EVENT DATE: 20210102
